FAERS Safety Report 9122801 (Version 2)
Quarter: 2013Q3

REPORT INFORMATION
  Report Type: Spontaneous
  Country: FI (occurrence: FI)
  Receive Date: 20130115
  Receipt Date: 20130912
  Transmission Date: 20140515
  Serious: Yes (Life-Threatening, Hospitalization)
  Sender: FDA-Public Use
  Company Number: FI-PFIZER INC-2013010000

PATIENT
  Age: 84 Year
  Sex: Female
  Weight: 56 kg

DRUGS (14)
  1. ZYVOXID [Suspect]
     Indication: STAPHYLOCOCCAL SEPSIS
     Dosage: 600 MG, 2X/DAY
     Route: 042
     Dates: start: 20121112, end: 20121214
  2. NITRO [Concomitant]
     Dosage: 10 MG, 1X/DAY
  3. SOMAC [Concomitant]
     Dosage: 40 MG, 1X/DAY
     Route: 042
     Dates: end: 20121213
  4. ATRODUAL [Concomitant]
     Dosage: 1 AMPULLA FOUR TIMES DAILY
  5. KLEXANE [Concomitant]
     Dosage: 20 MG, 2X/DAY
     Route: 058
     Dates: end: 20121211
  6. CIPROFLOXACIN [Concomitant]
     Dosage: 200 MG, 2X/DAY
     Route: 042
     Dates: start: 201211, end: 20121213
  7. OXYNORM [Concomitant]
     Indication: PAIN
     Dosage: 5MG WITHOUT UPPER LIMIT (07DEC2012)
     Route: 042
  8. OXYNORM [Concomitant]
     Dosage: 30 MG, UNK
     Route: 058
     Dates: start: 20121214, end: 20121217
  9. FURESIS [Concomitant]
     Dosage: 10 MG, 3X/DAY
     Route: 042
  10. PERFALGAN [Concomitant]
     Dosage: 1 G, 3X/DAY
     Route: 042
  11. PULMICORT [Concomitant]
     Dosage: 1 AMPULLA TWICE DAILY
  12. DUROGESIC [Concomitant]
     Indication: PAIN
     Dosage: 12 MIKROGRAM/H EVERY 3 DAYS
  13. DUROGESIC [Concomitant]
     Dosage: 25 MIKROGRAMS/HOUR DAILY
     Dates: start: 20121213
  14. MYCOSTATIN [Concomitant]
     Dosage: 1 ML, 4X/DAY

REACTIONS (7)
  - Disseminated intravascular coagulation [Unknown]
  - Drug eruption [Recovered/Resolved]
  - Platelet count decreased [Not Recovered/Not Resolved]
  - Haemoglobin decreased [Not Recovered/Not Resolved]
  - International normalised ratio abnormal [Not Recovered/Not Resolved]
  - Blood urine present [Not Recovered/Not Resolved]
  - Activated partial thromboplastin time prolonged [Not Recovered/Not Resolved]
